FAERS Safety Report 19932443 (Version 1)
Quarter: 2021Q4

REPORT INFORMATION
  Report Type: Spontaneous
  Country: US (occurrence: US)
  Receive Date: 20211007
  Receipt Date: 20211007
  Transmission Date: 20220303
  Serious: No
  Sender: FDA-Public Use
  Company Number: None

PATIENT
  Age: 54 Year
  Sex: Female
  Weight: 51 kg

DRUGS (14)
  1. PRIVIGEN [Suspect]
     Active Substance: HUMAN IMMUNOGLOBULIN G
     Indication: Polyneuropathy
     Dosage: ?          OTHER FREQUENCY:EVERY 2 WEEKS;
     Route: 041
  2. crestor 10 mg po [Concomitant]
  3. diclofenac 1% gel topical [Concomitant]
  4. domperidone 20 mg po [Concomitant]
  5. evoxac 30 mg po [Concomitant]
  6. INCRUSE ELLIPTA [Concomitant]
     Active Substance: UMECLIDINIUM BROMIDE
  7. linzess 290 mcg po [Concomitant]
  8. norco 10/325 po [Concomitant]
  9. ondansetron 4 mg po [Concomitant]
  10. prednisone 20 mg po [Concomitant]
  11. pyridogstimine 60 mg po [Concomitant]
  12. sumitriptan 50 mg po [Concomitant]
  13. zetia 10 mg po [Concomitant]
  14. zolpidem 10 mg po [Concomitant]

REACTIONS (2)
  - Pruritus [None]
  - Urticaria [None]

NARRATIVE: CASE EVENT DATE: 20211005
